FAERS Safety Report 7777155-4 (Version None)
Quarter: 2011Q3

REPORT INFORMATION
  Report Type: 
  Country: None (occurrence: None)
  Receive Date: 20110922
  Receipt Date: 20110914
  Transmission Date: 20111222
  Serious: No
  Sender: FDA-Public Use
  Company Number: 2011SP001329

PATIENT
  Age: 43 Year
  Sex: Female
  Weight: 82 kg

DRUGS (2)
  1. CERAZETTE (DESOGESTREL /00754001/) [Suspect]
     Indication: UTERINE LEIOMYOMA
     Dosage: PO
     Route: 048
     Dates: start: 20010101, end: 20110101
  2. CERAZETTE (DESOGESTREL /00754001/) [Suspect]
     Indication: AMENORRHOEA
     Dosage: PO
     Route: 048
     Dates: start: 20010101, end: 20110101

REACTIONS (3)
  - MENSTRUATION IRREGULAR [None]
  - INAPPROPRIATE SCHEDULE OF DRUG ADMINISTRATION [None]
  - AMENORRHOEA [None]
